FAERS Safety Report 7638556-8 (Version None)
Quarter: 2011Q3

REPORT INFORMATION
  Report Type: 
  Country: None (occurrence: None)
  Receive Date: 20110720
  Receipt Date: 20110705
  Transmission Date: 20111222
  Serious: Yes (Death)
  Sender: FDA-Public Use
  Company Number: 2011MA008631

PATIENT
  Age: 82 Year
  Sex: Female

DRUGS (3)
  1. IBUPROFEN [Suspect]
     Indication: BACK PAIN
     Dosage: ;TID;
     Dates: start: 20110101, end: 20110201
  2. PINEX FORTE [Concomitant]
  3. ACETYLSALICYLIC ACID/ PARACETAMOL [Concomitant]

REACTIONS (6)
  - CARDIAC FUNCTION DISTURBANCE POSTOPERATIVE [None]
  - CARDIAC FAILURE [None]
  - PLEURAL EFFUSION [None]
  - LACTOBACILLUS TEST POSITIVE [None]
  - BLOOD CULTURE POSITIVE [None]
  - GASTRIC ULCER [None]
